FAERS Safety Report 24404878 (Version 1)
Quarter: 2024Q4

REPORT INFORMATION
  Report Type: Spontaneous
  Country: US (occurrence: None)
  Receive Date: 20241004
  Receipt Date: 20241004
  Transmission Date: 20250114
  Serious: Yes (Other)
  Sender: Public
  Company Number: None

PATIENT
  Age: 47 Year
  Sex: Female
  Weight: 75.4 kg

DRUGS (2)
  1. EMGALITY [Suspect]
     Active Substance: GALCANEZUMAB-GNLM
     Indication: Migraine
     Dates: start: 20240708
  2. EMGALITY [Concomitant]
     Active Substance: GALCANEZUMAB-GNLM
     Dates: start: 20240708, end: 20240708

REACTIONS (3)
  - Ataxia [None]
  - Tardive dyskinesia [None]
  - Post procedural complication [None]

NARRATIVE: CASE EVENT DATE: 20240709
